FAERS Safety Report 5696350-1 (Version None)
Quarter: 2008Q2

REPORT INFORMATION
  Report Type: 
  Country: None (occurrence: None)
  Receive Date: 20080407
  Receipt Date: 20080326
  Transmission Date: 20081010
  Serious: Yes (Other)
  Sender: FDA-Public Use
  Company Number: US-PFIZER INC-2008027101

PATIENT
  Sex: Female
  Weight: 68.181 kg

DRUGS (7)
  1. DILANTIN [Suspect]
     Indication: GRAND MAL CONVULSION
  2. ALL OTHER THERAPEUTIC PRODUCTS [Concomitant]
  3. PHENOBARBITONE [Concomitant]
  4. TOPAMAX [Concomitant]
  5. TEGRETOL [Concomitant]
  6. FOSAMAX [Concomitant]
  7. FOLIC ACID [Concomitant]

REACTIONS (4)
  - ANTICONVULSANT DRUG LEVEL INCREASED [None]
  - BIOPSY BRAIN ABNORMAL [None]
  - BONE DENSITY DECREASED [None]
  - CONVULSION [None]
